FAERS Safety Report 22015726 (Version 1)
Quarter: 2023Q1

REPORT INFORMATION
  Report Type: Spontaneous
  Country: US (occurrence: US)
  Receive Date: 20230221
  Receipt Date: 20230221
  Transmission Date: 20230417
  Serious: Yes (Other)
  Sender: FDA-Public Use
  Company Number: US-PFIZER INC-14286

PATIENT
  Age: 17 Year
  Sex: Male

DRUGS (15)
  1. PROPOFOL [Suspect]
     Active Substance: PROPOFOL
     Indication: Induction of anaesthesia
     Dosage: A RATE OF 2.8 MG/MIN
     Route: 065
  2. PROPOFOL [Suspect]
     Active Substance: PROPOFOL
     Indication: Anaesthesia
     Dosage: TOTAL DOSE 550 MG
  3. PROPOFOL [Suspect]
     Active Substance: PROPOFOL
     Dosage: 40 MG OVER 20 MINUTES
  4. ATENOLOL [Concomitant]
     Active Substance: ATENOLOL
     Dosage: 100 MG, DAILY
     Route: 065
  5. FENTANYL CITRATE [Concomitant]
     Active Substance: FENTANYL CITRATE
     Indication: Echocardiogram
     Dosage: 75 UG
  6. GABAPENTIN [Concomitant]
     Active Substance: GABAPENTIN
     Dosage: 300 MG, 4X/DAY
  7. MIDAZOLAM [Concomitant]
     Active Substance: MIDAZOLAM
     Indication: Anaesthesia
     Dosage: 4 MG
  8. MIDAZOLAM [Concomitant]
     Active Substance: MIDAZOLAM
     Dosage: 3 MG
     Route: 065
  9. CISATRACURIUM [Concomitant]
     Active Substance: CISATRACURIUM
     Indication: Anaesthesia
     Dosage: A RATE OF 90 UG/MIN
  10. MERCAPTOPURINE [Concomitant]
     Active Substance: MERCAPTOPURINE
     Dosage: 30 MG, DAILY
  11. MESALAMINE [Concomitant]
     Active Substance: MESALAMINE
     Dosage: 1 G, DAILY
     Route: 065
  12. NITROUS OXIDE [Concomitant]
     Active Substance: NITROUS OXIDE
     Indication: Anaesthesia
     Dosage: UNK
     Route: 055
  13. POLYETHYLENE GLYCOL [Concomitant]
     Active Substance: POLYETHYLENE GLYCOL
     Dosage: 17 G, 1X/DAY  EACH NIGHT
  14. SEVOFLURANE [Concomitant]
     Active Substance: SEVOFLURANE
     Indication: Anaesthesia
     Dosage: UNK
     Route: 055
  15. TRAMADOL [Concomitant]
     Active Substance: TRAMADOL
     Dosage: 50-100 MG EVERY 6 HOURS AS NEEDED

REACTIONS (1)
  - Priapism [Recovered/Resolved]
